FAERS Safety Report 23281990 (Version 1)
Quarter: 2023Q4

REPORT INFORMATION
  Report Type: Report from Study
  Country: DK (occurrence: DK)
  Receive Date: 20231211
  Receipt Date: 20231211
  Transmission Date: 20240110
  Serious: Yes (Hospitalization)
  Sender: FDA-Public Use
  Company Number: DK-SA-SAC20231122001557

PATIENT
  Sex: Male

DRUGS (4)
  1. ISATUXIMAB [Suspect]
     Active Substance: ISATUXIMAB
     Indication: Plasma cell myeloma
     Dosage: 10 MG/KG
     Route: 065
  2. ISATUXIMAB [Suspect]
     Active Substance: ISATUXIMAB
     Dosage: 10 MG/KG, DAY 1,15
     Route: 065
     Dates: start: 20231027, end: 20231110
  3. LENALIDOMIDE [Suspect]
     Active Substance: LENALIDOMIDE
     Indication: Plasma cell myeloma
     Dosage: 25 MG; DAY 1-25
     Dates: start: 20231027, end: 20231119
  4. LENALIDOMIDE [Suspect]
     Active Substance: LENALIDOMIDE
     Dosage: 25 MG

REACTIONS (1)
  - Neuroborreliosis [Not Recovered/Not Resolved]

NARRATIVE: CASE EVENT DATE: 20231027
